FAERS Safety Report 11422202 (Version 1)
Quarter: 2015Q3

REPORT INFORMATION
  Report Type: Spontaneous
  Country: US (occurrence: None)
  Receive Date: 20150826
  Receipt Date: 20150826
  Transmission Date: 20151125
  Serious: Yes (Hospitalization)
  Sender: FDA-Public Use
  Company Number: None

PATIENT

DRUGS (2)
  1. ESTRADIOL TRANSDERMAL SYSTEM [Suspect]
     Active Substance: ESTRADIOL
     Indication: ARTIFICIAL MENOPAUSE
     Dosage: ONE TIME TRIAL X2/WK DAY PATCH
     Route: 062
  2. ESTRADIOL. [Suspect]
     Active Substance: ESTRADIOL
     Indication: HOT FLUSH
     Dosage: ONE TIME TRIAL 0.5 MG QD PO
     Route: 048

REACTIONS (3)
  - Dizziness [None]
  - Heart rate increased [None]
  - Hypertension [None]

NARRATIVE: CASE EVENT DATE: 2009
